FAERS Safety Report 21642491 (Version 1)
Quarter: 2022Q4

REPORT INFORMATION
  Report Type: Report from Study
  Country: US (occurrence: US)
  Receive Date: 20221125
  Receipt Date: 20221125
  Transmission Date: 20230112
  Serious: Yes (Hospitalization, Other)
  Sender: FDA-Public Use
  Company Number: US-BRISTOL-MYERS SQUIBB COMPANY-2022-141214

PATIENT
  Age: 85 Year
  Sex: Female
  Weight: 69.853 kg

DRUGS (1)
  1. REVLIMID [Suspect]
     Active Substance: LENALIDOMIDE
     Indication: Product used for unknown indication
     Route: 048
     Dates: start: 20170106

REACTIONS (4)
  - Hypoacusis [Unknown]
  - Pulmonary embolism [Unknown]
  - Peripheral swelling [Unknown]
  - Thrombosis [Unknown]
